FAERS Safety Report 10200837 (Version 1)
Quarter: 2014Q2

REPORT INFORMATION
  Report Type: Spontaneous
  Country: BY (occurrence: BY)
  Receive Date: 20140528
  Receipt Date: 20140528
  Transmission Date: 20141212
  Serious: Yes (Death)
  Sender: FDA-Public Use
  Company Number: BY-ROCHE-1409212

PATIENT
  Age: 66 Year
  Sex: Male

DRUGS (3)
  1. MABTHERA [Suspect]
     Indication: CHRONIC LYMPHOCYTIC LEUKAEMIA
     Route: 041
  2. CLEMASTIN [Concomitant]
  3. PREDNIZOLON [Concomitant]

REACTIONS (1)
  - Death [Fatal]
